FAERS Safety Report 21952370 (Version 1)
Quarter: 2023Q1

REPORT INFORMATION
  Report Type: Report from Study
  Country: TH (occurrence: None)
  Receive Date: 20230203
  Receipt Date: 20230203
  Transmission Date: 20230418
  Serious: Yes (Death)
  Sender: FDA-Public Use
  Company Number: 2023A028995

PATIENT
  Sex: Female

DRUGS (9)
  1. TAGRISSO [Suspect]
     Active Substance: OSIMERTINIB
     Indication: Non-small cell lung cancer
     Route: 048
     Dates: start: 20221217
  2. IRESSA [Suspect]
     Active Substance: GEFITINIB
     Indication: Non-small cell lung cancer
     Dosage: 250.0MG NOT APPLICABLE
     Route: 048
     Dates: start: 20200522, end: 20221217
  3. IRESSA [Suspect]
     Active Substance: GEFITINIB
     Indication: EGFR gene mutation
     Dosage: 250.0MG NOT APPLICABLE
     Route: 048
     Dates: start: 20200522, end: 20221217
  4. PREGABALIN [Concomitant]
     Active Substance: PREGABALIN
  5. FOLIC ACID [Concomitant]
     Active Substance: FOLIC ACID
  6. DEXAMETHASONE [Concomitant]
     Active Substance: DEXAMETHASONE
  7. DEXTROMETHORPHAN [Concomitant]
     Active Substance: DEXTROMETHORPHAN
  8. RABEPRAZOLE [Concomitant]
     Active Substance: RABEPRAZOLE
  9. SALT [Concomitant]
     Active Substance: SODIUM CHLORIDE

REACTIONS (1)
  - Death [Fatal]
